FAERS Safety Report 8223019-1 (Version None)
Quarter: 2012Q1

REPORT INFORMATION
  Report Type: 
  Country: None (occurrence: None)
  Receive Date: 20120320
  Receipt Date: 20120315
  Transmission Date: 20120608
  Serious: Yes (Hospitalization)
  Sender: FDA-Public Use
  Company Number: US-B.I. PHARMACEUTICALS,INC./RIDGEFIELD-2012-BP-05012BP

PATIENT
  Sex: Male

DRUGS (8)
  1. VITAMIN D [Concomitant]
     Indication: VITAMIN SUPPLEMENTATION
     Route: 048
  2. VITAMIN B-12 [Concomitant]
     Indication: VITAMIN SUPPLEMENTATION
     Route: 048
  3. VITAMIN E [Concomitant]
     Indication: VITAMIN SUPPLEMENTATION
     Route: 048
  4. MULTI-VITAMINS [Concomitant]
     Indication: VITAMIN SUPPLEMENTATION
     Route: 048
  5. MIRAPEX [Suspect]
     Indication: RESTLESS LEGS SYNDROME
     Dosage: 1 MG
     Route: 048
     Dates: start: 20090101
  6. VITAMIN D6 [Concomitant]
     Indication: VITAMIN SUPPLEMENTATION
     Route: 048
  7. COUMADIN [Concomitant]
     Indication: CARDIAC DISORDER
     Route: 048
  8. BENICAR [Concomitant]
     Indication: HYPERTENSION
     Route: 048

REACTIONS (3)
  - LIMB INJURY [None]
  - TENDON INJURY [None]
  - NASAL CONGESTION [None]
